FAERS Safety Report 17436192 (Version 1)
Quarter: 2020Q1

REPORT INFORMATION
  Report Type: Spontaneous
  Country: JP (occurrence: JP)
  Receive Date: 20200219
  Receipt Date: 20200219
  Transmission Date: 20200409
  Serious: Yes (Other)
  Sender: FDA-Public Use
  Company Number: JP-UCBSA-2020007101

PATIENT
  Age: 10 Year
  Sex: Female

DRUGS (2)
  1. SODIUM VALPROATE [Suspect]
     Active Substance: VALPROATE SODIUM
     Indication: PRODUCT USED FOR UNKNOWN INDICATION
     Dosage: UNK
     Route: 048
  2. VIMPAT [Suspect]
     Active Substance: LACOSAMIDE
     Indication: FRONTAL LOBE EPILEPSY
     Dosage: 60 MILLIGRAM, 2X/DAY (BID)
     Route: 048

REACTIONS (1)
  - Appendicitis [Recovered/Resolved]
